FAERS Safety Report 9778518 (Version 1)
Quarter: 2013Q4

REPORT INFORMATION
  Report Type: Spontaneous
  Country: US (occurrence: None)
  Receive Date: 20131219
  Receipt Date: 20131219
  Transmission Date: 20140711
  Serious: Yes (Other)
  Sender: FDA-Public Use
  Company Number: 2013AP010400

PATIENT
  Age: 50 Year
  Sex: Male

DRUGS (2)
  1. NICOTINE TRANSDERMAL SYSTEM [Suspect]
     Dates: start: 20131120, end: 20131127
  2. NICOTINE TRANSDERMAL SYSTEM [Concomitant]

REACTIONS (7)
  - Skin exfoliation [None]
  - Application site pain [None]
  - Application site pain [None]
  - Influenza like illness [None]
  - Drug ineffective [None]
  - Respiratory tract infection [None]
  - Application site scab [None]
